FAERS Safety Report 8465140-9 (Version None)
Quarter: 2012Q2

REPORT INFORMATION
  Report Type: 
  Country: None (occurrence: None)
  Receive Date: 20120626
  Receipt Date: 20120620
  Transmission Date: 20120825
  Serious: Yes (Other)
  Sender: FDA-Public Use
  Company Number: US-PFIZER INC-2012149545

PATIENT
  Sex: Male
  Weight: 20.408 kg

DRUGS (4)
  1. GENOTROPIN [Suspect]
     Indication: HYPOTHALAMO-PITUITARY DISORDER
     Dosage: 1 MG, DAILY
     Dates: start: 20090101
  2. ALBUTEROL SULFATE [Concomitant]
     Indication: HYPERSENSITIVITY
  3. ALBUTEROL SULFATE [Concomitant]
     Indication: NASOPHARYNGITIS
     Dosage: UNK, AS NEEDED
  4. ALBUTEROL SULFATE [Concomitant]
     Indication: ASTHMA

REACTIONS (4)
  - DEPRESSION [None]
  - SUICIDAL IDEATION [None]
  - EMOTIONAL DISORDER [None]
  - AGGRESSION [None]
